FAERS Safety Report 21753542 (Version 1)
Quarter: 2022Q4

REPORT INFORMATION
  Report Type: Spontaneous
  Country: US (occurrence: US)
  Receive Date: 20221220
  Receipt Date: 20221220
  Transmission Date: 20230113
  Serious: No
  Sender: FDA-Public Use
  Company Number: US-CELLTRION INC.-2021US017408

PATIENT

DRUGS (1)
  1. TRUXIMA [Suspect]
     Active Substance: RITUXIMAB-ABBS
     Indication: Extranodal marginal zone B-cell lymphoma (MALT type)
     Dosage: 700 MG ON DAY 1, 8, 15, 22 Q 28 DAYS
     Dates: start: 20211207

REACTIONS (1)
  - Off label use [Unknown]
